FAERS Safety Report 5206304-7 (Version None)
Quarter: 2007Q1

REPORT INFORMATION
  Report Type: 
  Country: None (occurrence: None)
  Receive Date: 20070111
  Receipt Date: 20061226
  Transmission Date: 20070707
  Serious: Yes (Hospitalization, Disabling)
  Sender: FDA-Public Use
  Company Number: JP-BOEHRINGER INGELHEIM PHARMACEUTICALS, INC.-2006-BP-10608NB

PATIENT
  Sex: Female

DRUGS (5)
  1. MEXITIL [Suspect]
     Indication: ARRHYTHMIA
     Route: 048
     Dates: start: 20060327, end: 20060426
  2. MERISLON (BETAHISTINE MESYLATE) [Concomitant]
     Route: 048
     Dates: start: 20060327, end: 20060427
  3. BUFFERIN [Concomitant]
     Route: 048
     Dates: start: 20060327, end: 20060426
  4. GASMOTIN [Concomitant]
     Route: 048
     Dates: start: 20060327, end: 20060427
  5. MENESIT [Concomitant]
     Route: 048
     Dates: start: 20060327, end: 20060427

REACTIONS (2)
  - DIABETES MELLITUS INSULIN-DEPENDENT [None]
  - DRUG HYPERSENSITIVITY [None]
